FAERS Safety Report 16352519 (Version 1)
Quarter: 2019Q2

REPORT INFORMATION
  Report Type: Spontaneous
  Country: IN (occurrence: IN)
  Receive Date: 20190524
  Receipt Date: 20190524
  Transmission Date: 20190711
  Serious: Yes (Death)
  Sender: FDA-Public Use
  Company Number: PHHY2019IN119249

PATIENT
  Age: 6 Year

DRUGS (1)
  1. IMATINIB. [Suspect]
     Active Substance: IMATINIB MESYLATE
     Indication: ACUTE LYMPHOCYTIC LEUKAEMIA
     Dosage: 340 MG/M2, UNK
     Route: 065

REACTIONS (5)
  - Febrile neutropenia [Fatal]
  - Bacterial sepsis [Fatal]
  - Septic shock [Fatal]
  - Tuberculosis [Fatal]
  - Acute respiratory distress syndrome [Fatal]
